FAERS Safety Report 8169235-9 (Version None)
Quarter: 2012Q1

REPORT INFORMATION
  Report Type: 
  Country: None (occurrence: None)
  Receive Date: 20120227
  Receipt Date: 20120216
  Transmission Date: 20120608
  Serious: Yes (Other)
  Sender: FDA-Public Use
  Company Number: FR-ASTRAZENECA-2012SE11704

PATIENT
  Age: 16069 Day
  Sex: Male

DRUGS (9)
  1. INDOMETHACIN [Concomitant]
  2. AZARGA [Concomitant]
  3. ZITHROMAX [Suspect]
     Indication: EYE INFECTION TOXOPLASMAL
     Route: 048
     Dates: start: 20111108, end: 20111124
  4. PREDNISOLONE [Suspect]
     Route: 048
     Dates: start: 20111108, end: 20111122
  5. ISKEDYL [Suspect]
     Route: 048
     Dates: start: 20111108, end: 20111122
  6. CHIBROCADRON [Concomitant]
  7. OMEPRAZOLE [Suspect]
     Route: 048
     Dates: start: 20111108, end: 20111124
  8. CLINDAMYCIN HCL [Suspect]
     Route: 048
     Dates: start: 20111108
  9. ASPIRIN AND DIPYRIDAMOLE [Concomitant]

REACTIONS (1)
  - PANCREATITIS ACUTE [None]
